FAERS Safety Report 6148340-2 (Version None)
Quarter: 2009Q2

REPORT INFORMATION
  Report Type: 
  Country: None (occurrence: None)
  Receive Date: 20090408
  Receipt Date: 20090317
  Transmission Date: 20091009
  Serious: Yes (Death, Other)
  Sender: FDA-Public Use
  Company Number: KE-JNJFOC-20090401620

PATIENT
  Age: 11 Year
  Sex: Female

DRUGS (1)
  1. MEBENDAZOLE [Suspect]
     Indication: ECHINOCOCCIASIS
     Route: 048

REACTIONS (3)
  - DEATH [None]
  - GLOMERULONEPHRITIS PROLIFERATIVE [None]
  - VEIN DISORDER [None]
